FAERS Safety Report 5159262-8 (Version None)
Quarter: 2006Q4

REPORT INFORMATION
  Report Type: 
  Country: None (occurrence: None)
  Receive Date: 20061117
  Receipt Date: 20061103
  Transmission Date: 20070319
  Serious: Yes (Hospitalization)
  Sender: FDA-Public Use
  Company Number: 2006P1000322

PATIENT
  Age: 50 Year
  Sex: Female
  Weight: 80 kg

DRUGS (7)
  1. RETEPLASE         (RETEPLASE) [Suspect]
     Indication: ACUTE MYOCARDIAL INFARCTION
     Dosage: IV
     Route: 042
     Dates: start: 20060516, end: 20060516
  2. ABCIXIMAB          (ABCIXIMAB) [Suspect]
     Indication: ACUTE MYOCARDIAL INFARCTION
     Dosage: IV
     Route: 042
     Dates: start: 20060516, end: 20060516
  3. ASPIRIN [Concomitant]
  4. METOPROLOL SUCCINATE [Concomitant]
  5. CLOPIDOGREL [Concomitant]
  6. QUINAPRIL [Concomitant]
  7. SIMVASTATIN [Concomitant]

REACTIONS (6)
  - HAEMATOMA [None]
  - PUNCTURE SITE HAEMORRHAGE [None]
  - PYELONEPHRITIS [None]
  - SKIN NECROSIS [None]
  - SPINAL DISORDER [None]
  - WOUND INFECTION [None]
